FAERS Safety Report 13781423 (Version 1)
Quarter: 2017Q3

REPORT INFORMATION
  Report Type: Spontaneous
  Country: US (occurrence: US)
  Receive Date: 20170722
  Receipt Date: 20170722
  Transmission Date: 20171127
  Serious: Yes (Hospitalization)
  Sender: FDA-Public Use
  Company Number: None

PATIENT
  Age: 78 Year
  Sex: Male
  Weight: 65.4 kg

DRUGS (2)
  1. TEMOZOLOMIDE. [Suspect]
     Active Substance: TEMOZOLOMIDE
     Dates: end: 20170710
  2. XELODA [Suspect]
     Active Substance: CAPECITABINE
     Dates: end: 20170710

REACTIONS (1)
  - Cholangitis [None]

NARRATIVE: CASE EVENT DATE: 20170711
